FAERS Safety Report 8333162-4 (Version None)
Quarter: 2012Q2

REPORT INFORMATION
  Report Type: 
  Country: None (occurrence: None)
  Receive Date: 20120503
  Receipt Date: 20120427
  Transmission Date: 20120825
  Serious: Yes (Hospitalization, Other)
  Sender: FDA-Public Use
  Company Number: US-PFIZER INC-2012105726

PATIENT
  Sex: Female

DRUGS (1)
  1. LYRICA [Suspect]
     Indication: NEURALGIA
     Dosage: 150MG, (TWO 75MG CAPSULES) AT BEDTIME

REACTIONS (5)
  - PNEUMONIA [None]
  - MYALGIA [None]
  - HEADACHE [None]
  - VISUAL IMPAIRMENT [None]
  - DYSURIA [None]
